FAERS Safety Report 8088922-4 (Version None)
Quarter: 2012Q1

REPORT INFORMATION
  Report Type: 
  Country: None (occurrence: None)
  Receive Date: 20120128
  Receipt Date: 20110714
  Transmission Date: 20120608
  Serious: Yes (Hospitalization, Other)
  Sender: FDA-Public Use
  Company Number: US-ABBOTT-10P-163-0652669-00

PATIENT
  Sex: Female
  Weight: 63.56 kg

DRUGS (13)
  1. FOLIC ACID [Concomitant]
     Indication: VITAMIN SUPPLEMENTATION
  2. CRESTOR [Concomitant]
     Indication: BLOOD CHOLESTEROL INCREASED
  3. HUMIRA [Suspect]
     Dates: start: 20090101, end: 20110301
  4. HUMIRA [Suspect]
     Indication: ANKYLOSING SPONDYLITIS
     Dosage: 2 INJECTIONS
     Dates: start: 20110401
  5. LIPITOR [Concomitant]
     Indication: BLOOD CHOLESTEROL INCREASED
  6. ASPIRIN [Concomitant]
     Indication: CARDIAC DISORDER
  7. LOVAZA [Concomitant]
     Indication: SUPPLEMENTATION THERAPY
  8. CELEBREX [Concomitant]
     Indication: ANKYLOSING SPONDYLITIS
     Dates: start: 20010101
  9. LUNESTA [Concomitant]
     Indication: INSOMNIA
  10. METHOTREXATE [Concomitant]
     Indication: ANKYLOSING SPONDYLITIS
  11. PREDNISONE TAB [Concomitant]
     Indication: ANKYLOSING SPONDYLITIS
  12. BUTALBITAL [Concomitant]
     Indication: HEADACHE
  13. VITAMIN D [Concomitant]
     Indication: VITAMIN SUPPLEMENTATION

REACTIONS (10)
  - MUSCULOSKELETAL PAIN [None]
  - PAIN IN EXTREMITY [None]
  - BURNING SENSATION [None]
  - NEURALGIA [None]
  - INJECTION SITE PAIN [None]
  - HYPOAESTHESIA [None]
  - PARAESTHESIA [None]
  - PRURITUS [None]
  - MYALGIA [None]
  - PIRIFORMIS SYNDROME [None]
